FAERS Safety Report 22246802 (Version 1)
Quarter: 2023Q2

REPORT INFORMATION
  Report Type: Report from Study
  Country: US (occurrence: US)
  Receive Date: 20230424
  Receipt Date: 20230424
  Transmission Date: 20230722
  Serious: No
  Sender: FDA-Public Use
  Company Number: US-002147023-NVSC2023US091039

PATIENT
  Sex: Female

DRUGS (1)
  1. MAYZENT [Suspect]
     Active Substance: SIPONIMOD
     Indication: Product used for unknown indication
     Dosage: UNK
     Route: 065
     Dates: start: 20230329

REACTIONS (5)
  - Pruritus [Unknown]
  - Chest discomfort [Unknown]
  - Nausea [Unknown]
  - Migraine [Unknown]
  - Heart rate irregular [Unknown]
